FAERS Safety Report 25248515 (Version 1)
Quarter: 2025Q2

REPORT INFORMATION
  Report Type: Spontaneous
  Country: CH (occurrence: CH)
  Receive Date: 20250429
  Receipt Date: 20250429
  Transmission Date: 20250717
  Serious: Yes (Other)
  Sender: JOHNSON AND JOHNSON
  Company Number: None

PATIENT
  Age: 36 Year
  Sex: Male
  Weight: 105 kg

DRUGS (12)
  1. RYBREVANT [Suspect]
     Active Substance: AMIVANTAMAB-VMJW
     Indication: Lung adenocarcinoma
     Dosage: } 80KG 2100MG (100%)
     Route: 042
     Dates: start: 20231109, end: 202404
  2. RYBREVANT [Suspect]
     Active Substance: AMIVANTAMAB-VMJW
     Route: 042
     Dates: start: 202404
  3. PEMETREXED DISODIUM [Suspect]
     Active Substance: PEMETREXED DISODIUM
     Indication: Lung adenocarcinoma
     Dosage: 1000MG (500MG/M^2) ALLE 3 WOCHEN
     Dates: start: 20230929
  4. CARBOPLATIN [Concomitant]
     Active Substance: CARBOPLATIN
     Indication: Lung adenocarcinoma
     Dates: start: 20230929, end: 20231201
  5. CALCIUM\CHOLECALCIFEROL [Concomitant]
     Active Substance: CALCIUM\CHOLECALCIFEROL
     Dosage: 1 SEPARATED DOSES
     Route: 048
  6. CALCIUM\CHOLECALCIFEROL [Concomitant]
     Active Substance: CALCIUM\CHOLECALCIFEROL
  7. HERBALS [Concomitant]
     Active Substance: HERBALS
     Route: 048
  8. FRAGMIN [Concomitant]
     Active Substance: DALTEPARIN SODIUM
     Indication: Embolism venous
     Dosage: 1 SEPARATED DOSES
     Route: 058
  9. XGEVA [Concomitant]
     Active Substance: DENOSUMAB
     Dosage: 1 SEPARATED DOSES
     Route: 058
     Dates: start: 20231221
  10. Andreafol [Concomitant]
     Dosage: 1 SEPARATED DOSES
     Route: 048
  11. PANTOPRAZOLE SODIUM [Concomitant]
     Active Substance: PANTOPRAZOLE SODIUM
     Dosage: 1 SEPARATED DOSES
     Route: 048
  12. CALCIUM CARBONATE [Concomitant]
     Active Substance: CALCIUM CARBONATE

REACTIONS (5)
  - Skin toxicity [Recovering/Resolving]
  - C-reactive protein increased [Recovering/Resolving]
  - Embolism venous [Unknown]
  - Influenza like illness [Recovering/Resolving]
  - Pyrexia [Recovering/Resolving]

NARRATIVE: CASE EVENT DATE: 20230101
